FAERS Safety Report 16415688 (Version 3)
Quarter: 2020Q3

REPORT INFORMATION
  Report Type: Spontaneous
  Country: US (occurrence: US)
  Receive Date: 20190611
  Receipt Date: 20200728
  Transmission Date: 20201102
  Serious: No
  Sender: FDA-Public Use
  Company Number: US-SA-2019SA155724

PATIENT

DRUGS (1)
  1. DUPIXENT [Suspect]
     Active Substance: DUPILUMAB
     Indication: DERMATITIS ATOPIC
     Dosage: 300 MG, QOW
     Route: 058
     Dates: start: 20190219

REACTIONS (4)
  - Nightmare [Unknown]
  - Productive cough [Unknown]
  - Respiratory tract congestion [Unknown]
  - Rash [Unknown]

NARRATIVE: CASE EVENT DATE: 20190424
